FAERS Safety Report 9321158 (Version 5)
Quarter: 2014Q1

REPORT INFORMATION
  Report Type: Report from Study
  Country: US (occurrence: US)
  Receive Date: 20130531
  Receipt Date: 20140110
  Transmission Date: 20141002
  Serious: Yes (Hospitalization, Other)
  Sender: FDA-Public Use
  Company Number: US-JNJFOC-20130515938

PATIENT
  Age: 61 Year
  Sex: Female
  Weight: 114.76 kg

DRUGS (25)
  1. CELEXA [Concomitant]
     Indication: DEPRESSION
     Route: 048
     Dates: start: 2010
  2. CALCIUM AND VITAMIN D3 [Concomitant]
     Indication: VITAMIN D DEFICIENCY
     Route: 048
  3. NORCO [Concomitant]
     Indication: PAIN
     Dosage: DOSE: ^5-325 MG^
     Route: 048
     Dates: start: 2012
  4. FOLIC ACID [Concomitant]
     Indication: ANAEMIA
     Route: 048
  5. MUCOMYST (ACETYLCYSTEINE) [Concomitant]
     Indication: SINUS DISORDER
     Dosage: ^EXTRA STRENGTH^
     Route: 048
  6. PREDNISONE [Concomitant]
     Route: 048
  7. PREDNISONE [Concomitant]
     Route: 048
  8. IRON [Concomitant]
     Route: 065
  9. REMICADE [Suspect]
     Indication: RHEUMATOID ARTHRITIS
     Route: 042
     Dates: start: 20130408, end: 2013
  10. REMICADE [Suspect]
     Indication: RHEUMATOID ARTHRITIS
     Route: 042
     Dates: start: 201208
  11. REMICADE [Suspect]
     Indication: RHEUMATOID ARTHRITIS
     Route: 042
     Dates: start: 201209, end: 20121029
  12. REMICADE [Suspect]
     Indication: RHEUMATOID ARTHRITIS
     Route: 042
     Dates: start: 20130307, end: 20130408
  13. REMICADE [Suspect]
     Indication: RHEUMATOID ARTHRITIS
     Route: 042
     Dates: start: 20130318
  14. VITAMIN D [Concomitant]
     Dosage: 1200/1000, UNITS UNSPECIFIED
     Route: 048
  15. FERROUS SULFATE [Concomitant]
     Indication: BLOOD IRON DECREASED
     Route: 048
     Dates: start: 20130301
  16. METHOTREXATE [Concomitant]
     Indication: ESSENTIAL HYPERTENSION
     Route: 048
  17. POTASSIUM CHLORIDE [Concomitant]
     Indication: ESSENTIAL HYPERTENSION
     Route: 048
     Dates: start: 2012
  18. INDAPAMIDE [Concomitant]
     Indication: DIURETIC THERAPY
     Route: 048
  19. INDAPAMIDE [Concomitant]
     Indication: ESSENTIAL HYPERTENSION
     Route: 048
  20. EXFORGE [Concomitant]
     Indication: HYPERTENSION
     Dosage: DOSE: 5-160 MG
     Route: 048
  21. DICYCLOMINE HCL [Concomitant]
     Indication: DIARRHOEA
     Route: 048
  22. DICYCLOMINE HCL [Concomitant]
     Indication: IRRITABLE BOWEL SYNDROME
     Route: 048
  23. PANTOPRAZOLE [Concomitant]
     Indication: GASTROOESOPHAGEAL REFLUX DISEASE
     Route: 048
  24. VITAMIN B12 [Concomitant]
     Dosage: AS DIRECTED
     Route: 065
     Dates: start: 2010
  25. GABAPENTIN [Concomitant]
     Indication: ARTHRITIS
     Route: 048

REACTIONS (10)
  - Back disorder [Recovering/Resolving]
  - Pain [Recovered/Resolved]
  - Fall [Recovered/Resolved]
  - Intervertebral disc protrusion [Recovering/Resolving]
  - Exostosis [Recovering/Resolving]
  - Scoliosis [Recovering/Resolving]
  - Gout [Unknown]
  - Hypoaesthesia [Unknown]
  - Musculoskeletal pain [Unknown]
  - Drug ineffective [Not Recovered/Not Resolved]
